FAERS Safety Report 8059912-2 (Version None)
Quarter: 2012Q1

REPORT INFORMATION
  Report Type: 
  Country: None (occurrence: None)
  Receive Date: 20120120
  Receipt Date: 20120109
  Transmission Date: 20120608
  Serious: Yes (Hospitalization, Other)
  Sender: FDA-Public Use
  Company Number: US-BAYER-2011-032006

PATIENT
  Age: 28 Year
  Sex: Female
  Weight: 65 kg

DRUGS (9)
  1. SINGULAIR [Concomitant]
     Dosage: 10 MG, QD
     Dates: start: 20090603
  2. YASMIN [Suspect]
     Indication: ORAL CONTRACEPTION
     Dosage: UNK
     Route: 048
     Dates: start: 20090606, end: 20090727
  3. TREXIMET [Concomitant]
     Dosage: UNK UNK, PRN
  4. DICLOFENAC [Concomitant]
     Dosage: 75 MG, UNK
     Dates: start: 20090620
  5. FELDENE [Concomitant]
     Dosage: 20 MG, QD
     Dates: start: 20090603
  6. ALLEGRA [Concomitant]
     Dosage: 180 MG, QD
     Dates: start: 20090603
  7. ADACEL [Concomitant]
     Dosage: UNK
     Dates: start: 20090619
  8. CEPHALEXIN [Concomitant]
     Indication: PELVIC PAIN
     Dosage: 500 MG, UNK
     Dates: start: 20090712, end: 20090720
  9. IBUPROFEN [Concomitant]
     Indication: PELVIC PAIN
     Dosage: 800 MG, UNK
     Dates: start: 20090712, end: 20090720

REACTIONS (16)
  - BRAIN OEDEMA [None]
  - DEPRESSION [None]
  - EMOTIONAL DISTRESS [None]
  - HAEMORRHAGIC STROKE [None]
  - VOMITING [None]
  - PHOTOPHOBIA [None]
  - INSOMNIA [None]
  - TEMPERATURE INTOLERANCE [None]
  - MIGRAINE [None]
  - NAUSEA [None]
  - SENSATION OF PRESSURE [None]
  - ANXIETY [None]
  - CEREBRAL VENOUS THROMBOSIS [None]
  - HYPOAESTHESIA [None]
  - PAIN IN EXTREMITY [None]
  - HYPERACUSIS [None]
